FAERS Safety Report 9607547 (Version 8)
Quarter: 2014Q1

REPORT INFORMATION
  Report Type: Report from Study
  Country: CA (occurrence: CA)
  Receive Date: 20131009
  Receipt Date: 20140327
  Transmission Date: 20141002
  Serious: Yes (Hospitalization, Disabling, Other)
  Sender: FDA-Public Use
  Company Number: CA-ABBVIE-13P-028-1079885-00

PATIENT
  Age: 60 Year
  Sex: Female
  Weight: 75 kg

DRUGS (36)
  1. HUMIRA [Suspect]
     Indication: CROHN^S DISEASE
     Route: 058
     Dates: start: 20090114, end: 20130424
  2. CYANOCOBALAMIN [Concomitant]
     Indication: VITAMIN B12 DEFICIENCY
     Route: 058
     Dates: start: 1989, end: 20130724
  3. PARACETAMOL [Concomitant]
     Indication: ARTHRALGIA
     Dates: start: 2001, end: 20131010
  4. PARACETAMOL [Concomitant]
     Indication: ABDOMINAL PAIN
  5. PIOGLITAZONE HYDROCHLORIDE [Concomitant]
     Indication: DIABETES MELLITUS
     Dates: start: 20060201, end: 20130524
  6. PIOGLITAZONE HYDROCHLORIDE [Concomitant]
     Route: 048
     Dates: start: 20130601
  7. ZOPICLONE [Concomitant]
     Indication: SLEEP DISORDER
     Dosage: 7.5 MG
     Dates: start: 20061015, end: 20091024
  8. ZOPICLONE [Concomitant]
     Dosage: 7.5 MG
     Dates: start: 20091025, end: 201110
  9. ZOPICLONE [Concomitant]
     Dosage: 7.5 MG Q HS
     Route: 048
     Dates: start: 20130103, end: 20130830
  10. TILACTASE [Concomitant]
     Indication: LACTOSE INTOLERANCE
     Dates: start: 2006
  11. PARACETAMOL [Concomitant]
     Indication: ARTHRALGIA
     Dates: start: 2006, end: 20131010
  12. BENADRYL ALLERGY [Concomitant]
     Indication: HYPERSENSITIVITY
     Dates: start: 200807
  13. DIPHENHYDRAMINE HYDROCHLORIDE [Concomitant]
     Indication: RASH PRURITIC
     Route: 048
     Dates: start: 20090701
  14. CO REPAGLINIDE [Concomitant]
     Indication: DIABETES MELLITUS
     Dates: start: 20130326, end: 20130524
  15. COLESTIPOL HYDROCHLORIDE [Concomitant]
     Indication: DIARRHOEA
     Route: 048
     Dates: start: 20041022, end: 20110116
  16. COLESTIPOL HYDROCHLORIDE [Concomitant]
     Dosage: 1-2 TABS AS NEEDED
     Route: 048
     Dates: start: 20110117
  17. COLESTIPOL HYDROCHLORIDE [Concomitant]
     Route: 048
     Dates: start: 20130906, end: 20131108
  18. ESOMEPRAZOLE [Concomitant]
     Indication: GASTROOESOPHAGEAL REFLUX DISEASE
     Route: 048
     Dates: start: 20120913, end: 20130416
  19. ESOMEPRAZOLE [Concomitant]
     Route: 048
     Dates: start: 20130423, end: 201306
  20. SALBUTAMOL [Concomitant]
     Indication: CHRONIC OBSTRUCTIVE PULMONARY DISEASE
     Route: 055
     Dates: start: 20121014
  21. ULTRAM [Concomitant]
     Indication: ABDOMINAL PAIN
     Dosage: BID PRN
     Dates: start: 20130307, end: 20130524
  22. ULTRAM [Concomitant]
     Indication: BACK PAIN
  23. SERETIDE [Concomitant]
     Indication: CHRONIC OBSTRUCTIVE PULMONARY DISEASE
     Route: 055
     Dates: start: 20121108, end: 201306
  24. ANUSOL [Concomitant]
     Indication: PROPHYLAXIS
     Route: 054
     Dates: start: 20130308
  25. ANUSOL [Concomitant]
     Indication: ANORECTAL DISCOMFORT
  26. ANUSOL [Concomitant]
     Indication: FAECAL INCONTINENCE
  27. HEMCORT H.C. [Concomitant]
     Indication: PROPHYLAXIS
     Dosage: BID PRN
     Dates: start: 20120913
  28. HEMCORT H.C. [Concomitant]
     Indication: ANORECTAL DISCOMFORT
  29. HEMCORT H.C. [Concomitant]
     Indication: FAECAL INCONTINENCE
  30. DESVENLAFAXINE SUCCINATE [Concomitant]
     Indication: DEPRESSION
     Route: 048
     Dates: start: 20100525
  31. ALTACE [Concomitant]
     Indication: HYPERTENSION
     Dates: start: 20100724, end: 20130524
  32. CLONIDINE [Concomitant]
     Indication: NIGHT SWEATS
     Dosage: 0.025 MG X 2
     Dates: start: 20110615
  33. MULTIVITAMINS [Concomitant]
     Indication: VITAMIN SUPPLEMENTATION
     Route: 048
     Dates: start: 200312, end: 201303
  34. MULTIVITAMINS [Concomitant]
     Route: 048
     Dates: start: 201308
  35. XANAX [Concomitant]
     Indication: ANXIETY
     Route: 048
     Dates: start: 201303, end: 201310
  36. DIMENHYDRINATE [Concomitant]
     Indication: NAUSEA

REACTIONS (3)
  - Ureteric obstruction [Recovered/Resolved]
  - B-cell lymphoma [Not Recovered/Not Resolved]
  - Renal failure acute [Recovered/Resolved]
